FAERS Safety Report 9727815 (Version 2)
Quarter: 2014Q1

REPORT INFORMATION
  Report Type: Report from Study
  Country: JP (occurrence: JP)
  Receive Date: 20131204
  Receipt Date: 20140131
  Transmission Date: 20141002
  Serious: Yes (Death)
  Sender: FDA-Public Use
  Company Number: JP-AMGEN-JPNCT2013085102

PATIENT
  Age: 84 Year
  Sex: Female
  Weight: 49 kg

DRUGS (16)
  1. DARBEPOETIN ALFA [Suspect]
     Indication: NEPHROGENIC ANAEMIA
     Dosage: 40 MUG, Q2WK
     Route: 058
     Dates: start: 20101108, end: 20130513
  2. D ALFA [Concomitant]
     Dosage: UNK
     Route: 048
  3. METHYCOBAL [Concomitant]
     Dosage: UNK
     Route: 048
  4. JUVELA N [Concomitant]
     Dosage: UNK
     Route: 048
  5. ZYLORIC [Concomitant]
     Dosage: UNK
     Route: 048
  6. ISCOTIN                            /00030201/ [Concomitant]
     Dosage: UNK
     Route: 048
  7. PYDOXAL [Concomitant]
     Dosage: UNK
     Route: 048
  8. DEPAS [Concomitant]
     Dosage: UNK
     Route: 048
  9. MILTAX [Concomitant]
     Dosage: UNK
     Route: 062
  10. VOLTAREN                           /00372302/ [Concomitant]
     Dosage: UNK
     Route: 062
  11. NU-LOTAN [Concomitant]
     Dosage: UNK
     Route: 048
  12. VITANEURIN                         /00056102/ [Concomitant]
     Dosage: UNK
     Route: 048
  13. GASTER                             /00706001/ [Concomitant]
     Dosage: UNK
     Route: 048
  14. EUTENSIN [Concomitant]
     Indication: GLOMERULONEPHRITIS CHRONIC
     Dosage: UNK
     Route: 048
  15. ISCOTIN                            /00030201/ [Concomitant]
     Dosage: UNK
     Route: 048
  16. VITANEURIN                         /00056102/ [Concomitant]
     Dosage: UNK
     Route: 048

REACTIONS (6)
  - Lung neoplasm malignant [Fatal]
  - Metastases to central nervous system [Fatal]
  - Gastritis [Recovering/Resolving]
  - Conjunctivochalasis [Recovering/Resolving]
  - Conjunctivitis [Recovered/Resolved]
  - Nasopharyngitis [Recovered/Resolved]
